FAERS Safety Report 11744392 (Version 1)
Quarter: 2015Q4

REPORT INFORMATION
  Report Type: Spontaneous
  Country: US (occurrence: US)
  Receive Date: 20151116
  Receipt Date: 20151116
  Transmission Date: 20160304
  Serious: Yes (Other)
  Sender: FDA-Public Use
  Company Number: US-LPDUSPRD-20150646

PATIENT
  Sex: Female

DRUGS (3)
  1. DIURETICS (UNSPECIFIED) [Concomitant]
     Dosage: DOSE NOT PROVIDED
     Route: 065
  2. INJECTAFER [Suspect]
     Active Substance: FERRIC CARBOXYMALTOSE
     Dosage: 750MG/250ML NS
     Route: 042
     Dates: start: 20150803, end: 20150803
  3. BETA BLOCKER (UNSPECIFIED) [Concomitant]
     Dosage: DOSE NOT PROVIDED
     Route: 065

REACTIONS (1)
  - Blood pressure systolic increased [Unknown]

NARRATIVE: CASE EVENT DATE: 20150803
